FAERS Safety Report 10170111 (Version 1)
Quarter: 2014Q2

REPORT INFORMATION
  Report Type: Report from Study
  Country: US (occurrence: US)
  Receive Date: 20140513
  Receipt Date: 20140513
  Transmission Date: 20141212
  Serious: Yes (Other)
  Sender: FDA-Public Use
  Company Number: US-BAXTER-2014BAX024317

PATIENT
  Sex: 0

DRUGS (6)
  1. CYCLOPHOSPHAMIDE FOR INJECTION, USP [Suspect]
     Indication: SICKLE CELL ANAEMIA
     Dosage: DAYS -5 TO -2
     Route: 065
  2. BUSULFAN [Suspect]
     Indication: SICKLE CELL ANAEMIA
     Route: 042
  3. EQUINE ANTITHYMOCYTE GLOBULIN [Suspect]
     Indication: SICKLE CELL ANAEMIA
     Dosage: DAYS -3 TO -1
     Route: 065
  4. CYCLOSPORINE [Suspect]
     Indication: PROPHYLAXIS AGAINST GRAFT VERSUS HOST DISEASE
     Dosage: ADJUSTED TO ACHIEVE LEVEL OF 150-250NG/ML
     Route: 042
  5. METHOTREXATE [Suspect]
     Indication: PROPHYLAXIS AGAINST GRAFT VERSUS HOST DISEASE
     Dosage: DAY +1
     Route: 042
  6. METHOTREXATE [Suspect]
     Dosage: DAYS +3, +6, AND +11
     Route: 042

REACTIONS (1)
  - Acute graft versus host disease [Unknown]
